FAERS Safety Report 20434835 (Version 5)
Quarter: 2022Q1

REPORT INFORMATION
  Report Type: Report from Study
  Country: US (occurrence: US)
  Receive Date: 20220206
  Receipt Date: 20220325
  Transmission Date: 20220423
  Serious: Yes (Other)
  Sender: FDA-Public Use
  Company Number: US-NOVARTISPH-NVSC2022US022014

PATIENT
  Sex: Female
  Weight: 90.975 kg

DRUGS (3)
  1. TREPROSTINIL [Suspect]
     Active Substance: TREPROSTINIL
     Indication: Pulmonary arterial hypertension
     Dosage: 15 NG/KG/MIN, CONT
     Route: 042
     Dates: start: 20220125
  2. TREPROSTINIL [Suspect]
     Active Substance: TREPROSTINIL
     Dosage: UNK, CONT (18 NG/KG/MIN)
     Route: 042
  3. OPSUMIT [Concomitant]
     Active Substance: MACITENTAN
     Indication: Product used for unknown indication
     Dosage: UNK
     Route: 065

REACTIONS (9)
  - Pulmonary hypertension [Unknown]
  - Confusional state [Unknown]
  - Fluid retention [Unknown]
  - Memory impairment [Unknown]
  - Seasonal allergy [Unknown]
  - Fatigue [Unknown]
  - Muscle twitching [Recovering/Resolving]
  - Rhinorrhoea [Unknown]
  - Product dose omission issue [Unknown]
